FAERS Safety Report 17554678 (Version 3)
Quarter: 2023Q4

REPORT INFORMATION
  Report Type: Spontaneous
  Country: US (occurrence: US)
  Receive Date: 20200318
  Receipt Date: 20231027
  Transmission Date: 20240109
  Serious: Yes (Life-Threatening, Hospitalization, Other)
  Sender: FDA-Public Use
  Company Number: US-MLMSERVICE-20200303-2193273-1

PATIENT
  Age: 32 Year
  Sex: Female

DRUGS (10)
  1. DEXAMETHASONE [Suspect]
     Active Substance: DEXAMETHASONE
     Indication: Hypertransaminasaemia
     Dosage: UNK
     Route: 065
  2. DEXAMETHASONE [Suspect]
     Active Substance: DEXAMETHASONE
     Indication: Nausea
  3. OXALIPLATIN [Suspect]
     Active Substance: OXALIPLATIN
     Indication: Hepatocellular carcinoma
     Dosage: UNK UNK, CYCLICAL
     Route: 065
  4. FLUOROURACIL [Suspect]
     Active Substance: FLUOROURACIL
     Indication: Hepatocellular carcinoma
     Dosage: UNK, CYCLICAL
     Route: 065
  5. LEUCOVORIN [Suspect]
     Active Substance: LEUCOVORIN\LEUCOVORIN CALCIUM
     Indication: Hepatocellular carcinoma
     Dosage: UNK, CYCLICAL
     Route: 065
  6. GEMCITABINE [Suspect]
     Active Substance: GEMCITABINE
     Indication: Hepatocellular carcinoma
     Dosage: UNK, CYCLICAL
     Route: 065
  7. NIVOLUMAB [Suspect]
     Active Substance: NIVOLUMAB
     Indication: Hepatocellular carcinoma
     Dosage: EVERY 2 WEEKS AT A STANDARD DOSE FOR 3 MONTHS
     Route: 065
  8. PREDNISONE [Suspect]
     Active Substance: PREDNISONE
     Indication: Rash
     Dosage: 1 DOSAGE FORM
     Route: 065
  9. PONATINIB [Suspect]
     Active Substance: PONATINIB
     Indication: Hepatocellular carcinoma
     Dosage: UNK, CYCLICAL
     Route: 065
  10. SORAFENIB [Suspect]
     Active Substance: SORAFENIB
     Indication: Hepatocellular carcinoma
     Dosage: UNK, CYCLICAL
     Route: 065

REACTIONS (6)
  - Soft tissue necrosis [Unknown]
  - Hyperammonaemia [Recovering/Resolving]
  - Condition aggravated [Recovering/Resolving]
  - Hyperammonaemic encephalopathy [Unknown]
  - Catabolic state [Unknown]
  - Toxicity to various agents [Unknown]
